FAERS Safety Report 18490870 (Version 1)
Quarter: 2020Q4

REPORT INFORMATION
  Report Type: Report from Study
  Country: JP (occurrence: JP)
  Receive Date: 20201111
  Receipt Date: 20201111
  Transmission Date: 20210114
  Serious: Yes (Death, Other)
  Sender: FDA-Public Use
  Company Number: JP-SECURA BIO, INC.-2016JP016485

PATIENT

DRUGS (17)
  1. FARYDAK [Suspect]
     Active Substance: PANOBINOSTAT
     Dosage: UNK
     Route: 048
  2. FENTANYL. [Interacting]
     Active Substance: FENTANYL
     Indication: PAIN MANAGEMENT
     Dosage: 5 MG, UNK
     Route: 062
  3. FENTANYL. [Interacting]
     Active Substance: FENTANYL
     Dosage: 4 MG, UNK
     Route: 062
  4. BORTEZOMIB. [Interacting]
     Active Substance: BORTEZOMIB
     Indication: PLASMA CELL MYELOMA
     Dosage: 1.3 MG/M2, UNK
     Route: 058
     Dates: start: 20151120, end: 20160113
  5. FENTANYL. [Interacting]
     Active Substance: FENTANYL
     Dosage: 2 MG, UNK
     Route: 062
  6. FENTANYL. [Interacting]
     Active Substance: FENTANYL
     Dosage: 3 MG, UNK
     Route: 062
  7. ACICLOVIR [Concomitant]
     Active Substance: ACYCLOVIR
     Indication: PRODUCT USED FOR UNKNOWN INDICATION
     Dosage: 200 MG, QD
     Route: 065
  8. DEXAMETHASONE. [Interacting]
     Active Substance: DEXAMETHASONE
     Indication: PLASMA CELL MYELOMA
     Dosage: 20 MG, UNK, 1CYCLE 21DAYS, DAYS 1, 2, 8, AND 9
     Route: 065
     Dates: start: 20151120, end: 20160113
  9. FENTANYL. [Interacting]
     Active Substance: FENTANYL
     Dosage: 2 MG, UNK
     Route: 062
  10. POMALYST [Concomitant]
     Active Substance: POMALIDOMIDE
     Indication: PRODUCT USED FOR UNKNOWN INDICATION
     Route: 065
     Dates: start: 201506
  11. DEXAMETHASONE. [Interacting]
     Active Substance: DEXAMETHASONE
     Dosage: UNK
     Route: 065
     Dates: start: 20160114, end: 20160201
  12. FENTANYL. [Interacting]
     Active Substance: FENTANYL
     Dosage: 3 MG, UNK
     Route: 062
  13. OXYCODONE;PARACETAMOL [Concomitant]
     Active Substance: ACETAMINOPHEN\OXYCODONE HYDROCHLORIDE
     Indication: PAIN MANAGEMENT
     Dosage: 20 MG, PRN
     Route: 048
  14. OXYCODONE;PARACETAMOL [Concomitant]
     Active Substance: ACETAMINOPHEN\OXYCODONE HYDROCHLORIDE
     Dosage: 20 MG, UNK
     Route: 048
  15. FARYDAK [Suspect]
     Active Substance: PANOBINOSTAT
     Indication: PLASMA CELL MYELOMA
     Dosage: 20 MG, QD
     Route: 048
     Dates: start: 201511
  16. FARYDAK [Suspect]
     Active Substance: PANOBINOSTAT
     Dosage: 20 MG, QD
     Route: 048
     Dates: start: 20160114, end: 20160201
  17. BORTEZOMIB. [Interacting]
     Active Substance: BORTEZOMIB
     Dosage: 1.3 UNK
     Route: 058
     Dates: start: 20160114, end: 20160201

REACTIONS (12)
  - Platelet count decreased [Recovered/Resolved]
  - Pyrexia [Unknown]
  - Atrial fibrillation [Not Recovered/Not Resolved]
  - Malaise [Unknown]
  - Nausea [Unknown]
  - Myelosuppression [Unknown]
  - Plasma cell myeloma [Fatal]
  - Malignant neoplasm progression [Fatal]
  - Somnolence [Recovering/Resolving]
  - Drug interaction [Unknown]
  - Disorientation [Unknown]
  - Tremor [Recovered/Resolved]

NARRATIVE: CASE EVENT DATE: 201511
